FAERS Safety Report 23773760 (Version 1)
Quarter: 2024Q2

REPORT INFORMATION
  Report Type: Spontaneous
  Country: US (occurrence: US)
  Receive Date: 20240423
  Receipt Date: 20240423
  Transmission Date: 20240716
  Serious: No
  Sender: FDA-Public Use
  Company Number: US-UROGEN PHARMA LTD.-2024-UGN-000050

PATIENT

DRUGS (5)
  1. JELMYTO [Suspect]
     Active Substance: MITOMYCIN
     Indication: Transitional cell cancer of the renal pelvis and ureter
     Dosage: 11 MILLILITER, ONCE A WEEK (INSTILLATION)
     Dates: start: 20240228, end: 20240228
  2. JELMYTO [Suspect]
     Active Substance: MITOMYCIN
     Dosage: 11 MILLILITER, ONCE A WEEK (INSTILLATION)
     Dates: start: 20240313, end: 20240313
  3. JELMYTO [Suspect]
     Active Substance: MITOMYCIN
     Dosage: 11 MILLILITER, ONCE A WEEK (INSTILLATION)
     Dates: start: 20240320, end: 20240320
  4. JELMYTO [Suspect]
     Active Substance: MITOMYCIN
     Dosage: 11 MILLILITER, ONCE A WEEK (INSTILLATION)
     Dates: start: 20240328, end: 20240328
  5. JELMYTO [Suspect]
     Active Substance: MITOMYCIN
     Dosage: 11 MILLILITER, ONCE A WEEK (INSTILLATION)
     Dates: start: 20240404, end: 20240404

REACTIONS (4)
  - Blood creatinine abnormal [Unknown]
  - Flank pain [Unknown]
  - Flank pain [Unknown]
  - Fatigue [Unknown]

NARRATIVE: CASE EVENT DATE: 20240229
